FAERS Safety Report 9798779 (Version 2)
Quarter: 2014Q1

REPORT INFORMATION
  Report Type: Spontaneous
  Country: US (occurrence: US)
  Receive Date: 20140106
  Receipt Date: 20140106
  Transmission Date: 20141002
  Serious: No
  Sender: FDA-Public Use
  Company Number: US-GILEAD-2010-0030114

PATIENT
  Sex: Male
  Weight: 54.43 kg

DRUGS (10)
  1. LETAIRIS [Suspect]
     Indication: PULMONARY ARTERIAL HYPERTENSION
     Route: 048
     Dates: start: 20100603
  2. LETAIRIS [Suspect]
     Route: 048
     Dates: start: 20100604
  3. COREG [Concomitant]
  4. ALDACTONE [Concomitant]
  5. OMEPRAZOLE [Concomitant]
  6. DIGOXIN [Concomitant]
  7. MULTIVITAMIN [Concomitant]
  8. ADCIRCA [Concomitant]
  9. ASPIRIN [Concomitant]
  10. GLUCOSAMINE [Concomitant]

REACTIONS (1)
  - Malaise [Unknown]
